FAERS Safety Report 6840575-6 (Version None)
Quarter: 2010Q3

REPORT INFORMATION
  Report Type: 
  Country: None (occurrence: None)
  Receive Date: 20100714
  Receipt Date: 20100705
  Transmission Date: 20110219
  Serious: Yes (Other)
  Sender: FDA-Public Use
  Company Number: B0570454A

PATIENT
  Age: 15 Year
  Sex: Female

DRUGS (7)
  1. AUGMENTIN '125' [Suspect]
     Indication: SURGERY
     Route: 065
     Dates: start: 20090201, end: 20090201
  2. UNKNOWN DRUG [Suspect]
     Indication: SURGERY
     Route: 065
     Dates: start: 20090201, end: 20090201
  3. ACETAMINOPHEN [Suspect]
     Indication: SURGERY
     Route: 065
     Dates: start: 20090201, end: 20090201
  4. MORPHINE SULFATE [Suspect]
     Indication: SURGERY
     Route: 065
     Dates: start: 20090201, end: 20090201
  5. LATEX [Suspect]
     Indication: SURGERY
     Route: 065
     Dates: start: 20090201, end: 20090201
  6. ANECTINE [Suspect]
     Indication: SURGERY
     Route: 065
     Dates: start: 20090201, end: 20090201
  7. TRACRIUM [Suspect]
     Indication: SURGERY
     Route: 065
     Dates: start: 20090201, end: 20090201

REACTIONS (3)
  - ANGIOEDEMA [None]
  - EYELID OEDEMA [None]
  - LIP SWELLING [None]
